FAERS Safety Report 8068881-0 (Version None)
Quarter: 2012Q1

REPORT INFORMATION
  Report Type: 
  Country: None (occurrence: None)
  Receive Date: 20120125
  Receipt Date: 20120112
  Transmission Date: 20120608
  Serious: No
  Sender: FDA-Public Use
  Company Number: US-BIOGENIDEC-2011BI047745

PATIENT
  Sex: Female

DRUGS (2)
  1. AVONEX [Suspect]
     Route: 030
     Dates: start: 20030101
  2. AVONEX [Suspect]
     Indication: MULTIPLE SCLEROSIS
     Route: 030
     Dates: start: 19980101, end: 20030101

REACTIONS (17)
  - INFLUENZA LIKE ILLNESS [None]
  - GAIT DISTURBANCE [None]
  - BACK DISORDER [None]
  - HEADACHE [None]
  - ROAD TRAFFIC ACCIDENT [None]
  - VISUAL ACUITY REDUCED [None]
  - HEAD INJURY [None]
  - MUSCULOSKELETAL PAIN [None]
  - MIGRAINE [None]
  - AMNESIA [None]
  - JOINT INJURY [None]
  - COGNITIVE DISORDER [None]
  - FALL [None]
  - JOINT DISLOCATION [None]
  - URINARY TRACT INFECTION [None]
  - VISUAL FIELD DEFECT [None]
  - BALANCE DISORDER [None]
